FAERS Safety Report 18627339 (Version 1)
Quarter: 2020Q4

REPORT INFORMATION
  Report Type: Spontaneous
  Country: CN (occurrence: CN)
  Receive Date: 20201217
  Receipt Date: 20201217
  Transmission Date: 20210114
  Serious: Yes (Other)
  Sender: FDA-Public Use
  Company Number: NVSC2020CN331924

PATIENT
  Age: 5 Year
  Sex: Female

DRUGS (2)
  1. TOBRADEX [Suspect]
     Active Substance: DEXAMETHASONE\TOBRAMYCIN
     Indication: ENTROPION
     Dosage: 1 DRP, QD
     Route: 065
     Dates: start: 20201110, end: 20201115
  2. TOBRADEX [Suspect]
     Active Substance: DEXAMETHASONE\TOBRAMYCIN
     Indication: TRICHIASIS

REACTIONS (4)
  - Ocular hypertension [Recovering/Resolving]
  - Vomiting [Recovering/Resolving]
  - Eye disorder [Recovering/Resolving]
  - Dizziness [Recovering/Resolving]

NARRATIVE: CASE EVENT DATE: 20201113
